FAERS Safety Report 7131196-9 (Version None)
Quarter: 2010Q4

REPORT INFORMATION
  Report Type: 
  Country: None (occurrence: None)
  Receive Date: 20101201
  Receipt Date: 20101122
  Transmission Date: 20110411
  Serious: Yes (Hospitalization)
  Sender: FDA-Public Use
  Company Number: CA-NOVOPROD-315508

PATIENT
  Sex: Female
  Weight: 90.8 kg

DRUGS (12)
  1. VICTOZA [Suspect]
     Indication: TYPE 2 DIABETES MELLITUS
     Dosage: 0.6 MG, QD
     Dates: start: 20100611, end: 20100618
  2. LANTUS [Concomitant]
     Indication: TYPE 2 DIABETES MELLITUS
     Dosage: 36 U, QD
     Route: 058
  3. LANTUS [Concomitant]
     Dosage: UNKNOWN
  4. METFORMIN HCL [Concomitant]
     Indication: TYPE 2 DIABETES MELLITUS
     Dosage: 500 MG, BID
  5. HUMALOG [Concomitant]
     Indication: TYPE 2 DIABETES MELLITUS
  6. LIPITOR [Concomitant]
     Dosage: 80 MG, QD
  7. MICARDIS HCT [Concomitant]
     Dosage: 80 MG, QD
  8. GLICLAZIDE [Concomitant]
     Indication: DIABETES MELLITUS
     Dosage: MR
  9. HYDROCHLOROTHIAZIDE [Concomitant]
     Dosage: 12.5 MG, QD
  10. PANTOPRAZOLE [Concomitant]
     Dosage: 20 MG, QD
  11. GABAPENTIN [Concomitant]
     Dosage: 300 MG, QD, HS
  12. IBUPROFEN [Concomitant]
     Dosage: 400 MG, PRN, Q4H

REACTIONS (5)
  - BLOOD GLUCOSE INCREASED [None]
  - DEHYDRATION [None]
  - HEART RATE INCREASED [None]
  - NAUSEA [None]
  - VOMITING [None]
